FAERS Safety Report 14690484 (Version 1)
Quarter: 2018Q1

REPORT INFORMATION
  Report Type: Spontaneous
  Country: US (occurrence: US)
  Receive Date: 20180328
  Receipt Date: 20180328
  Transmission Date: 20180509
  Serious: No
  Sender: FDA-Public Use
  Company Number: US-MYLANLABS-2018M1014965

PATIENT
  Age: 45 Year
  Sex: Female

DRUGS (1)
  1. GLATIRAMER ACETATE INJECTION [Suspect]
     Active Substance: GLATIRAMER ACETATE
     Indication: MULTIPLE SCLEROSIS
     Dosage: 40 MG, UNK
     Route: 058
     Dates: start: 20180228

REACTIONS (6)
  - Tenderness [Unknown]
  - Injection site erythema [Recovered/Resolved]
  - Erythema [Unknown]
  - Injection site swelling [Unknown]
  - Pyrexia [Unknown]
  - Injection site pain [Unknown]

NARRATIVE: CASE EVENT DATE: 20180228
